FAERS Safety Report 4829411-7 (Version None)
Quarter: 2005Q4

REPORT INFORMATION
  Report Type: 
  Country: None (occurrence: None)
  Receive Date: 20051028
  Receipt Date: 20050720
  Transmission Date: 20060501
  Serious: No
  Sender: FDA-Public Use
  Company Number: US143444

PATIENT
  Age: 55 Year
  Sex: Female

DRUGS (3)
  1. SENSIPAR [Suspect]
     Indication: HYPERPARATHYROIDISM SECONDARY
     Dosage: 30 MG, 1 IN 1 DAY, PO
     Route: 048
  2. SULTAMICILLIN [Suspect]
  3. ANTIBIOTICS NOS [Suspect]

REACTIONS (1)
  - RASH GENERALISED [None]
